FAERS Safety Report 4603989-0 (Version None)
Quarter: 2005Q1

REPORT INFORMATION
  Report Type: 
  Country: None (occurrence: None)
  Receive Date: 20050310
  Receipt Date: 20050228
  Transmission Date: 20050727
  Serious: Yes (Hospitalization)
  Sender: FDA-Public Use
  Company Number: US-GLAXOSMITHKLINE-A0547538A

PATIENT
  Age: 79 Year
  Sex: Male
  Weight: 58.6 kg

DRUGS (3)
  1. ECOTRIN REGULAR STRENGTH TABLETS [Suspect]
     Indication: ANALGESIC INTERVENTION SUPPORTIVE THERAPY
     Dosage: 325MG PER DAY
     Route: 048
     Dates: start: 20020101
  2. BLOOD PRESSURE MEDICATION [Concomitant]
     Indication: HYPERTENSION
  3. K-DUR 10 [Concomitant]

REACTIONS (1)
  - CORONARY ARTERY DISEASE [None]
